FAERS Safety Report 7384029-X (Version None)
Quarter: 2011Q1

REPORT INFORMATION
  Report Type: 
  Country: None (occurrence: None)
  Receive Date: 20110330
  Receipt Date: 20110316
  Transmission Date: 20110831
  Serious: Yes (Other)
  Sender: FDA-Public Use
  Company Number: JP-NAPPMUNDI-MAG-2011-0001476

PATIENT
  Sex: Male

DRUGS (14)
  1. OXYCODONE HYDROCHLORIDE [Suspect]
     Dosage: 5 MG, DAILY
     Route: 048
     Dates: start: 20100708, end: 20100716
  2. OXYCODONE HCL [Suspect]
     Dosage: 90 MG, DAILY
     Route: 048
     Dates: start: 20100721, end: 20100730
  3. OXYCODONE HCL [Suspect]
     Dosage: 60 MG, DAILY
     Route: 048
     Dates: start: 20100715, end: 20100720
  4. OXYCODONE HCL [Suspect]
     Indication: CANCER PAIN
     Dosage: 60 MG, DAILY
     Route: 048
     Dates: start: 20100731, end: 20100818
  5. PREDNISOLONE [Concomitant]
     Indication: CANCER PAIN
     Dosage: UNK
     Route: 048
     Dates: start: 20100713, end: 20100802
  6. OXYCODONE HYDROCHLORIDE [Suspect]
     Indication: CANCER PAIN
     Dosage: 15 MG, DAILY
     Route: 048
     Dates: start: 20100721, end: 20100826
  7. RINDERON                           /00008501/ [Concomitant]
     Indication: LUNG ADENOCARCINOMA
     Dosage: UNK
     Dates: start: 20100802, end: 20100913
  8. MOBIC [Concomitant]
     Indication: CANCER PAIN
     Dosage: UNK
     Route: 048
     Dates: end: 20100731
  9. GLYCEOL                            /00744501/ [Concomitant]
     Indication: LUNG ADENOCARCINOMA
     Dosage: UNK
     Dates: start: 20100802
  10. ZOMETA [Concomitant]
     Indication: CANCER PAIN
     Dosage: UNK
     Dates: start: 20100715, end: 20100715
  11. GRANISETRON HYDROCHLORIDE [Concomitant]
     Indication: LUNG ADENOCARCINOMA
     Dosage: UNK
     Dates: end: 20100805
  12. CAMPTOSAR [Concomitant]
     Indication: LUNG ADENOCARCINOMA
     Dosage: UNK
     Dates: end: 20100805
  13. OXYCODONE HYDROCHLORIDE [Suspect]
     Dosage: 10 MG, DAILY
     Route: 048
     Dates: start: 20100716, end: 20100721
  14. OXYCODONE HCL [Suspect]
     Dosage: 40 MG, DAILY
     Route: 048
     Dates: start: 20100713, end: 20100714

REACTIONS (1)
  - ANGINA PECTORIS [None]
